FAERS Safety Report 16817866 (Version 1)
Quarter: 2019Q3

REPORT INFORMATION
  Report Type: Spontaneous
  Country: US (occurrence: US)
  Receive Date: 20190917
  Receipt Date: 20190917
  Transmission Date: 20191005
  Serious: No
  Sender: FDA-Public Use
  Company Number: US-009507513-1909USA003460

PATIENT
  Age: 76 Year
  Sex: Female
  Weight: 68.03 kg

DRUGS (11)
  1. CALCIUM (UNSPECIFIED) [Concomitant]
     Active Substance: CALCIUM
  2. RASAGILINE. [Concomitant]
     Active Substance: RASAGILINE
  3. AMANTADINE. [Suspect]
     Active Substance: AMANTADINE HYDROCHLORIDE
     Dosage: ONCE DAILY AT BEDTIME / 1X/DAY
     Route: 048
     Dates: start: 20180817
  4. LEVOTHYROXINE SODIUM. [Concomitant]
     Active Substance: LEVOTHYROXINE SODIUM
  5. CYANOCOBALAMIN. [Concomitant]
     Active Substance: CYANOCOBALAMIN
     Dosage: UNK
     Dates: end: 201906
  6. CELEXA [Concomitant]
     Active Substance: CITALOPRAM HYDROBROMIDE
  7. SINEMET [Suspect]
     Active Substance: CARBIDOPA\LEVODOPA
     Dosage: 4X/DAY
     Route: 048
     Dates: end: 20190819
  8. BIOTIN [Concomitant]
     Active Substance: BIOTIN
     Dosage: UNK
     Dates: end: 201907
  9. OMEGA-3 ACIDS [Concomitant]
     Active Substance: OMEGA-3 FATTY ACIDS
     Dosage: UNK
     Dates: end: 201906
  10. VITAMIN D (UNSPECIFIED) [Concomitant]
     Active Substance: VITAMIN D NOS
     Dosage: UNK
     Dates: end: 201906
  11. CARBIDOPA (+) LEVODOPA [Suspect]
     Active Substance: CARBIDOPA\LEVODOPA
     Dosage: 4X/DAY (4 TIMES DAILY)
     Dates: start: 20190819

REACTIONS (8)
  - Weight decreased [Unknown]
  - Hot flush [Unknown]
  - Dyspnoea exertional [Unknown]
  - Neck pain [Unknown]
  - Dyskinesia [Unknown]
  - Musculoskeletal stiffness [Unknown]
  - Fatigue [Unknown]
  - Dizziness [Unknown]

NARRATIVE: CASE EVENT DATE: 201811
